FAERS Safety Report 6172865-7 (Version None)
Quarter: 2009Q2

REPORT INFORMATION
  Report Type: 
  Country: None (occurrence: None)
  Receive Date: 20090430
  Receipt Date: 20090424
  Transmission Date: 20091009
  Serious: Yes (Death)
  Sender: FDA-Public Use
  Company Number: DE-ROCHE-593531

PATIENT
  Age: 55 Year
  Sex: Female
  Weight: 168 kg

DRUGS (1)
  1. CAPECITABINE [Suspect]
     Route: 048
     Dates: start: 20070421, end: 20080104

REACTIONS (1)
  - NEOPLASM PROGRESSION [None]
